FAERS Safety Report 20946362 (Version 2)
Quarter: 2023Q1

REPORT INFORMATION
  Report Type: Spontaneous
  Country: US (occurrence: US)
  Receive Date: 20220610
  Receipt Date: 20230214
  Transmission Date: 20230417
  Serious: Yes (Hospitalization)
  Sender: FDA-Public Use
  Company Number: US-VERTEX PHARMACEUTICALS-2022-007790

PATIENT
  Sex: Female

DRUGS (24)
  1. TRIKAFTA [Suspect]
     Active Substance: ELEXACAFTOR\IVACAFTOR\TEZACAFTOR
     Indication: Cystic fibrosis
     Dosage: 2 TABS QAM AND 1 TAB QPM
     Route: 048
     Dates: start: 202001
  2. ALBUTEROL [Concomitant]
     Active Substance: ALBUTEROL
     Dosage: 2.5 MG, 3 ML, INH
  3. PROAIR HFA [Concomitant]
     Active Substance: ALBUTEROL SULFATE
     Indication: Wheezing
     Dosage: 90 MCG, 2 PUFFS BY MOUTH EVERY 4 HOURS
  4. AZITHROMYCIN [Concomitant]
     Active Substance: AZITHROMYCIN
     Dosage: 1 TAB, MWF
     Route: 048
  5. BUDESONIDE\FORMOTEROL [Concomitant]
     Active Substance: BUDESONIDE\FORMOTEROL
     Dosage: 80 MCG-4.5 MCG/ INH, 2 PUFF
  6. BUSPIRONE [Concomitant]
     Active Substance: BUSPIRONE HYDROCHLORIDE
     Dosage: 1 TAB
     Route: 048
  7. CHOLECALCIFEROL [Concomitant]
     Active Substance: CHOLECALCIFEROL
     Dosage: 50000 IU, CHEW, MWF
     Route: 048
  8. FEXOFENADINE [Concomitant]
     Active Substance: FEXOFENADINE HYDROCHLORIDE
     Dosage: 1 TAB, EVERY DAY
     Route: 048
  9. FLUOXETINE [Concomitant]
     Active Substance: FLUOXETINE HYDROCHLORIDE
     Dosage: 2 CAP EVERY DAY
     Route: 048
  10. FLUTICASONE [Concomitant]
     Active Substance: FLUTICASONE
     Dosage: 50 MCG/ INH; 1 SPRAY INTO EACH NOSTRIL TWICE A DAY
     Route: 045
  11. LANTUS [Concomitant]
     Active Substance: INSULIN GLARGINE
     Dosage: 12 UNITS, 1 TIME DAILY AT BEDTIME AS DIRECTED
     Route: 058
  12. HUMALOG [Concomitant]
     Active Substance: INSULIN LISPRO
     Dosage: 10 UNIT, SQ, TIDAC
  13. LEVOTHYROXINE [Concomitant]
     Active Substance: LEVOTHYROXINE
     Dosage: 1 TAB
     Route: 048
  14. LINZESS [Concomitant]
     Active Substance: LINACLOTIDE
     Dosage: 1 CAP
     Route: 048
  15. PROCARDIA [Concomitant]
     Active Substance: NIFEDIPINE
     Dosage: 1 TAB
     Route: 048
  16. OMEPRAZOLE [Concomitant]
     Active Substance: OMEPRAZOLE
     Dosage: 1 CAP
     Route: 048
  17. ZOFRAN [Concomitant]
     Active Substance: ONDANSETRON HYDROCHLORIDE
     Indication: Nausea
     Dosage: 1 TAB
     Route: 048
  18. ZOFRAN [Concomitant]
     Active Substance: ONDANSETRON HYDROCHLORIDE
     Indication: Vomiting
  19. CREON [Concomitant]
     Active Substance: PANCRELIPASE AMYLASE\PANCRELIPASE LIPASE\PANCRELIPASE PROTEASE
     Dosage: 4 CAPSULES TID WITH MEALS AND 2 CAPSULES BY MOUTH TID WITH SNACKS
     Route: 048
  20. MIRALAX [Concomitant]
     Active Substance: POLYETHYLENE GLYCOL 3350
     Dosage: EVERY DAYS, ORAL POWDER -  DISSOLVE IN WATER BEFORE TAKING
     Route: 048
  21. PYRIDOXINE [Concomitant]
     Active Substance: PYRIDOXINE
     Dosage: 1 TAB QID
  22. SODIUM CHLORIDE [Concomitant]
     Active Substance: SODIUM CHLORIDE
     Dosage: 0.28 GM, 4 ML
  23. ACTIGALL [Concomitant]
     Active Substance: URSODIOL
     Dosage: UNK, BID
     Route: 048
  24. ZALEPLON [Concomitant]
     Active Substance: ZALEPLON
     Indication: Insomnia
     Dosage: 1 CAP, QHS
     Route: 048

REACTIONS (3)
  - Premature baby [Unknown]
  - Feeding intolerance [Unknown]
  - Exposure via breast milk [Unknown]

NARRATIVE: CASE EVENT DATE: 20220101
